FAERS Safety Report 9510788 (Version 1)
Quarter: 2013Q3

REPORT INFORMATION
  Report Type: Spontaneous
  Country: BE (occurrence: BE)
  Receive Date: 20130910
  Receipt Date: 20130910
  Transmission Date: 20140515
  Serious: Yes (Hospitalization)
  Sender: FDA-Public Use
  Company Number: BE-AMGEN-BELSP2013062459

PATIENT
  Age: 59 Year
  Sex: Female

DRUGS (10)
  1. VECTIBIX [Suspect]
     Indication: COLORECTAL CANCER METASTATIC
     Dosage: 450 MG, QD
     Route: 042
     Dates: start: 20130723, end: 20130723
  2. FLUOROURACIL [Concomitant]
     Indication: COLORECTAL CANCER METASTATIC
     Dosage: UNK
  3. FOLINIC ACID [Concomitant]
     Indication: COLORECTAL CANCER METASTATIC
     Dosage: UNK
  4. OXALIPLATIN [Concomitant]
     Indication: COLORECTAL CANCER METASTATIC
     Dosage: UNK
  5. EMEND                              /01627301/ [Concomitant]
     Indication: NAUSEA
     Dosage: 125 MG, QD, 80 MG PER DAY ON NEXT TWO DAYS
     Route: 048
     Dates: start: 20130723, end: 20130723
  6. LITICAN                            /00690801/ [Concomitant]
     Indication: NAUSEA
     Dosage: 50 MG, QD
     Route: 042
     Dates: start: 20130723, end: 20130723
  7. LITICAN                            /00690801/ [Concomitant]
     Indication: VOMITING
  8. ZOFRAN                             /00955301/ [Concomitant]
     Indication: PROPHYLAXIS OF NAUSEA AND VOMITING
     Dosage: 8 MG, QD
     Route: 042
     Dates: start: 20130723, end: 20130723
  9. ZOFRAN                             /00955301/ [Concomitant]
     Indication: VOMITING
  10. ZOFRAN                             /00955301/ [Concomitant]
     Indication: NAUSEA

REACTIONS (3)
  - Bronchospasm [Recovered/Resolved]
  - Dyspnoea [Recovered/Resolved]
  - Wrong technique in drug usage process [Recovered/Resolved]
